FAERS Safety Report 11845959 (Version 1)
Quarter: 2015Q4

REPORT INFORMATION
  Report Type: Spontaneous
  Country: US (occurrence: US)
  Receive Date: 20151217
  Receipt Date: 20151217
  Transmission Date: 20160305
  Serious: Yes (Other)
  Sender: FDA-Public Use
  Company Number: US-BAYER-2015-489637

PATIENT
  Age: 60 Year
  Sex: Female

DRUGS (1)
  1. ULTRAVIST [Suspect]
     Active Substance: IOPROMIDE
     Indication: COMPUTERISED TOMOGRAM KIDNEY
     Dosage: 100 ML, ONCE
     Route: 042
     Dates: start: 20151214, end: 20151214

REACTIONS (2)
  - Throat tightness [Not Recovered/Not Resolved]
  - Urticaria [None]

NARRATIVE: CASE EVENT DATE: 20151214
